FAERS Safety Report 6456076-3 (Version None)
Quarter: 2009Q4

REPORT INFORMATION
  Report Type: 
  Country: None (occurrence: None)
  Receive Date: 20091125
  Receipt Date: 20091112
  Transmission Date: 20100525
  Serious: Yes (Hospitalization)
  Sender: FDA-Public Use
  Company Number: CA-WYE-H12164909

PATIENT
  Sex: Male
  Weight: 106 kg

DRUGS (6)
  1. METHYLNALTREXONE BROMIDE [Suspect]
     Indication: CONSTIPATION
     Route: 058
     Dates: start: 20090917, end: 20091112
  2. TYLENOL (CAPLET) [Concomitant]
     Indication: MUSCULOSKELETAL PAIN
     Route: 065
     Dates: start: 20040101
  3. TYLENOL (CAPLET) [Concomitant]
     Indication: GROIN PAIN
  4. METHADONE HCL [Concomitant]
     Indication: COMPLEX REGIONAL PAIN SYNDROME
     Route: 065
     Dates: start: 20050101
  5. GRAVOL TAB [Concomitant]
     Indication: NAUSEA
     Route: 065
     Dates: start: 20080901
  6. GRAVOL TAB [Concomitant]
     Indication: GASTROOESOPHAGEAL REFLUX DISEASE

REACTIONS (2)
  - CORONARY ARTERY DISEASE [None]
  - MYOCARDIAL INFARCTION [None]
